FAERS Safety Report 8788742 (Version 2)
Quarter: 2012Q4

REPORT INFORMATION
  Report Type: 
  Country: US (occurrence: US)
  Receive Date: 20120917
  Receipt Date: 20121218
  Transmission Date: 20130627
  Serious: Yes (Other)
  Sender: FDA-Public Use
  Company Number: US-AMGEN-USASP2012058002

PATIENT
  Age: 74 Year
  Sex: Male

DRUGS (1)
  1. XGEVA [Suspect]
     Indication: PRODUCT USED FOR UNKNOWN INDICATION
     Dosage: 120 mg, qmo

REACTIONS (2)
  - Osteonecrosis of jaw [Unknown]
  - Headache [Not Recovered/Not Resolved]
